FAERS Safety Report 4563650-8 (Version None)
Quarter: 2005Q1

REPORT INFORMATION
  Report Type: 
  Country: None (occurrence: None)
  Receive Date: 20050124
  Receipt Date: 20050414
  Transmission Date: 20050727
  Serious: Yes (Hospitalization)
  Sender: FDA-Public Use
  Company Number: 2005-01-0992

PATIENT
  Age: 27 Year
  Sex: Female

DRUGS (2)
  1. PEG-INTRON [Suspect]
     Indication: HEPATITIS C
     Dosage: SUBCUTAEOUS
     Route: 058
  2. RIBAVIRIN [Suspect]
     Indication: HEPATITIS C
     Dosage: ORAL
     Route: 048

REACTIONS (1)
  - TETANY [None]
